FAERS Safety Report 9981233 (Version 1)
Quarter: 2014Q1

REPORT INFORMATION
  Report Type: Spontaneous
  Country: US (occurrence: None)
  Receive Date: 20140306
  Receipt Date: 20140306
  Transmission Date: 20141002
  Serious: Yes (Hospitalization, Disabling, Other)
  Sender: FDA-Public Use
  Company Number: None

PATIENT
  Age: 24 Year
  Sex: Female
  Weight: 53.07 kg

DRUGS (1)
  1. VENLAFAXINE [Suspect]
     Indication: ANTIDEPRESSANT THERAPY
     Dosage: 1 PILL ONCE DAILY
     Dates: start: 20131225, end: 20140301

REACTIONS (5)
  - Abasia [None]
  - Dysstasia [None]
  - Economic problem [None]
  - Drug dose omission [None]
  - Unevaluable event [None]
